FAERS Safety Report 8974486 (Version 5)
Quarter: 2014Q4

REPORT INFORMATION
  Report Type: Spontaneous
  Country: US (occurrence: US)
  Receive Date: 20121219
  Receipt Date: 20141022
  Transmission Date: 20150529
  Serious: Yes (Hospitalization, Disabling, Other)
  Sender: FDA-Public Use
  Company Number: US-009507513-1212USA006865

PATIENT
  Sex: Female
  Weight: 58.96 kg

DRUGS (3)
  1. FOSAMAX [Suspect]
     Active Substance: ALENDRONATE SODIUM
     Indication: OSTEOPENIA
     Dosage: 35 MG, UNK
     Route: 048
     Dates: start: 200205, end: 20060131
  2. FOSAMAX [Suspect]
     Active Substance: ALENDRONATE SODIUM
     Indication: OSTEOPOROSIS
     Dosage: 70 MG, QW
     Route: 048
     Dates: start: 20060131, end: 20080301
  3. ALENDRONATE SODIUM. [Suspect]
     Active Substance: ALENDRONATE SODIUM
     Indication: OSTEOPOROSIS
     Dosage: 70 MG, UNK
     Route: 048
     Dates: start: 20080301, end: 20101002

REACTIONS (45)
  - Atypical femur fracture [Recovered/Resolved]
  - Fall [Unknown]
  - Carotid arteriosclerosis [Unknown]
  - Aortic valve sclerosis [Unknown]
  - Tricuspid valve incompetence [Unknown]
  - Paraesthesia [Unknown]
  - Femur fracture [Recovered/Resolved]
  - Packed red blood cell transfusion [Unknown]
  - Hypoaesthesia [Unknown]
  - Atrioventricular block first degree [Unknown]
  - Mitral valve calcification [Unknown]
  - Vascular calcification [Unknown]
  - Surgery [Unknown]
  - Acute kidney injury [Unknown]
  - Chronic kidney disease [Not Recovered/Not Resolved]
  - Renal artery arteriosclerosis [Unknown]
  - Diabetes mellitus [Unknown]
  - Asthma [Unknown]
  - Intramedullary rod insertion [Unknown]
  - Renal artery angioplasty [Unknown]
  - Post procedural haematoma [Unknown]
  - Anaemia postoperative [Recovering/Resolving]
  - Device breakage [Unknown]
  - Medical device removal [Recovered/Resolved]
  - Renal artery stenosis [Unknown]
  - Muscular weakness [Unknown]
  - Osteoarthritis [Unknown]
  - Dyslipidaemia [Unknown]
  - Left ventricular hypertrophy [Unknown]
  - Electrocardiogram T wave inversion [Unknown]
  - Back pain [Unknown]
  - Gastritis [Unknown]
  - Packed red blood cell transfusion [Unknown]
  - Pulmonary oedema [Recovering/Resolving]
  - QRS axis abnormal [Unknown]
  - Gastrointestinal ulcer [Unknown]
  - Femur fracture [Unknown]
  - Packed red blood cell transfusion [Unknown]
  - Renal atrophy [Unknown]
  - Renal hypertrophy [Unknown]
  - Hypertension [Unknown]
  - Open reduction of fracture [Recovered/Resolved]
  - Iron deficiency anaemia [Unknown]
  - Aortic valve calcification [Unknown]
  - Osteoarthritis [Unknown]

NARRATIVE: CASE EVENT DATE: 20031202
